FAERS Safety Report 9678415 (Version 2)
Quarter: 2015Q2

REPORT INFORMATION
  Report Type: Spontaneous
  Country: CA (occurrence: None)
  Receive Date: 20131106
  Receipt Date: 20150616
  Transmission Date: 20150821
  Serious: Yes (Hospitalization, Other)
  Sender: FDA-Public Use
  Company Number: JHP201300658

PATIENT
  Age: 64 Year
  Sex: Female

DRUGS (4)
  1. ZOLEDRONIC ACID [Suspect]
     Active Substance: ZOLEDRONIC ACID
     Indication: OSTEOPOROSIS
     Dosage: 5 MG, INFUSION OVER 15 MINUTES, INTERAVENOUS
     Route: 042
  2. HYDROCHLOROTHIAZIDE. [Concomitant]
     Active Substance: HYDROCHLOROTHIAZIDE
  3. BISOPROLOL (BISOPROLOL FUMARATE, HYDROCHLOROTHIAZIDE) [Concomitant]
  4. PERINDOPRIL [Concomitant]
     Active Substance: PERINDOPRIL

REACTIONS (9)
  - Pyrexia [None]
  - Dyspnoea [None]
  - Blood calcium decreased [None]
  - Presyncope [None]
  - Electrolyte imbalance [None]
  - Ventricular tachycardia [None]
  - Sinus tachycardia [None]
  - Product use issue [None]
  - Pain [None]
